FAERS Safety Report 8839915 (Version 5)
Quarter: 2013Q2

REPORT INFORMATION
  Report Type: Spontaneous
  Country: NO (occurrence: NO)
  Receive Date: 20121015
  Receipt Date: 20130416
  Transmission Date: 20140414
  Serious: No
  Sender: FDA-Public Use
  Company Number: PHHY2012NO089240

PATIENT
  Age: 62 Year
  Sex: Male

DRUGS (8)
  1. ONBREZ [Suspect]
     Indication: CHRONIC OBSTRUCTIVE PULMONARY DISEASE
     Dosage: 150 UG, UNK
     Dates: start: 20120215, end: 20120917
  2. SPIRIVA [Concomitant]
  3. LEVAXIN [Concomitant]
  4. ORUDIS [Concomitant]
  5. TOLVON [Concomitant]
     Indication: DEPRESSION
     Dosage: UNK
  6. CIPRALEX [Concomitant]
     Indication: DEPRESSION
  7. ELOCON [Concomitant]
  8. REMERON [Concomitant]
     Indication: DEPRESSION

REACTIONS (5)
  - Epistaxis [Recovered/Resolved]
  - Atrial fibrillation [Unknown]
  - Heart rate irregular [Unknown]
  - Palpitations [Unknown]
  - Headache [Recovered/Resolved]
